FAERS Safety Report 13490237 (Version 1)
Quarter: 2017Q2

REPORT INFORMATION
  Report Type: Report from Study
  Country: US (occurrence: US)
  Receive Date: 20170427
  Receipt Date: 20170427
  Transmission Date: 20170830
  Serious: Yes (Hospitalization, Other)
  Sender: FDA-Public Use
  Company Number: US-BRISTOL-MYERS SQUIBB COMPANY-BMS-2017-035180

PATIENT
  Age: 81 Year
  Sex: Male

DRUGS (1)
  1. IPILIMUMAB [Suspect]
     Active Substance: IPILIMUMAB
     Indication: METASTATIC MALIGNANT MELANOMA
     Dosage: UNK
     Route: 065
     Dates: start: 20170321

REACTIONS (6)
  - Confusional state [Recovering/Resolving]
  - Asthenia [Recovering/Resolving]
  - Internal haemorrhage [Recovering/Resolving]
  - Fall [Recovering/Resolving]
  - Seizure [Recovering/Resolving]
  - Metastases to central nervous system [Recovering/Resolving]

NARRATIVE: CASE EVENT DATE: 20170411
